FAERS Safety Report 19752904 (Version 1)
Quarter: 2021Q3

REPORT INFORMATION
  Report Type: Report from Study
  Country: ES (occurrence: ES)
  Receive Date: 20210826
  Receipt Date: 20210826
  Transmission Date: 20211014
  Serious: Yes (Hospitalization, Other)
  Sender: FDA-Public Use
  Company Number: ES-TAKEDA-2021TUS052275

PATIENT
  Age: 2 Year
  Sex: Male

DRUGS (8)
  1. MORPHINE [Concomitant]
     Active Substance: MORPHINE
     Indication: PAIN
     Dosage: 0.40 MILLIGRAM, TID
     Route: 048
     Dates: start: 20201217
  2. TEDUGLUTIDE [Suspect]
     Active Substance: TEDUGLUTIDE
     Indication: SHORT-BOWEL SYNDROME
     Dosage: 0.35 MILLIGRAM, QD
     Route: 065
     Dates: start: 202012
  3. CHLORPROMAZINE. [Concomitant]
     Active Substance: CHLORPROMAZINE
     Indication: PALLIATIVE CARE
     Dosage: 8 MILLIGRAM, TID
     Route: 048
  4. TEDUGLUTIDE [Suspect]
     Active Substance: TEDUGLUTIDE
     Indication: SHORT-BOWEL SYNDROME
     Dosage: 0.35 MILLIGRAM, QD
     Route: 065
     Dates: start: 202012
  5. TEDUGLUTIDE [Suspect]
     Active Substance: TEDUGLUTIDE
     Indication: SHORT-BOWEL SYNDROME
     Dosage: 0.35 MILLIGRAM, QD
     Route: 065
     Dates: start: 202012
  6. TEDUGLUTIDE [Suspect]
     Active Substance: TEDUGLUTIDE
     Indication: SHORT-BOWEL SYNDROME
     Dosage: 0.35 MILLIGRAM, QD
     Route: 065
     Dates: start: 202012
  7. VITAMIN K [Concomitant]
     Active Substance: PHYTONADIONE
     Dosage: 2.5 MILLIGRAM, QD
     Route: 042
  8. OMEPRAZOL [Concomitant]
     Active Substance: OMEPRAZOLE
     Indication: GASTROINTESTINAL DISORDER
     Dosage: 6 MILLIGRAM, QD
     Route: 048

REACTIONS (1)
  - Device related sepsis [Not Recovered/Not Resolved]

NARRATIVE: CASE EVENT DATE: 20210702
